FAERS Safety Report 5934051-2 (Version None)
Quarter: 2008Q4

REPORT INFORMATION
  Report Type: 
  Country: None (occurrence: None)
  Receive Date: 20081028
  Receipt Date: 20081028
  Transmission Date: 20090506
  Serious: Yes (Other)
  Sender: FDA-Public Use
  Company Number: None

PATIENT
  Age: 73 Year
  Sex: Male

DRUGS (1)
  1. GABAPENTIN [Suspect]
     Dosage: 600 MG QID PO
     Route: 048
     Dates: start: 20070529, end: 20070619

REACTIONS (2)
  - CONFUSIONAL STATE [None]
  - GAIT DISTURBANCE [None]
